FAERS Safety Report 25330486 (Version 1)
Quarter: 2025Q2

REPORT INFORMATION
  Report Type: Spontaneous
  Country: PL (occurrence: PL)
  Receive Date: 20250519
  Receipt Date: 20250519
  Transmission Date: 20250716
  Serious: Yes (Other)
  Sender: TEVA
  Company Number: None

PATIENT
  Age: 27 Year
  Sex: Male
  Weight: 80 kg

DRUGS (1)
  1. LEVOFLOXACIN [Suspect]
     Active Substance: LEVOFLOXACIN
     Indication: Prostatitis
     Route: 048
     Dates: start: 20211018, end: 20211022

REACTIONS (5)
  - Tachycardia [Recovering/Resolving]
  - Anxiety [Recovering/Resolving]
  - Restlessness [Recovering/Resolving]
  - Blood pressure increased [Recovering/Resolving]
  - Chest discomfort [Recovering/Resolving]

NARRATIVE: CASE EVENT DATE: 20211022
